FAERS Safety Report 6520582-3 (Version None)
Quarter: 2009Q4

REPORT INFORMATION
  Report Type: 
  Country: None (occurrence: None)
  Receive Date: 20091229
  Receipt Date: 20091225
  Transmission Date: 20100525
  Serious: Yes (Hospitalization)
  Sender: FDA-Public Use
  Company Number: JP-EISAI INC.-E2090-00852-SPO-JP

PATIENT
  Sex: Male

DRUGS (3)
  1. EXCEGRAN [Suspect]
     Route: 048
     Dates: start: 20080708, end: 20080811
  2. GASTER [Concomitant]
     Dosage: UNKNOWN
     Dates: start: 20080708, end: 20090813
  3. RINDERON [Concomitant]
     Dates: start: 20080811

REACTIONS (1)
  - DRUG RASH WITH EOSINOPHILIA AND SYSTEMIC SYMPTOMS [None]
